FAERS Safety Report 9369458 (Version 3)
Quarter: 2013Q3

REPORT INFORMATION
  Report Type: Spontaneous
  Country: FR (occurrence: FR)
  Receive Date: 20130626
  Receipt Date: 20130917
  Transmission Date: 20140515
  Serious: Yes (Disabling, Other)
  Sender: FDA-Public Use
  Company Number: PHHY2013FR064867

PATIENT
  Sex: Female

DRUGS (2)
  1. GLIVEC [Suspect]
     Indication: CHRONIC MYELOID LEUKAEMIA
     Dosage: 400 MG, DAILY
     Route: 048
     Dates: start: 20121009
  2. GLIVEC [Suspect]
     Dosage: 400 MG, QD
     Route: 048
     Dates: start: 201301, end: 201307

REACTIONS (4)
  - Respiratory failure [Not Recovered/Not Resolved]
  - Cough [Unknown]
  - Dyspnoea exertional [Recovering/Resolving]
  - Obstructive airways disorder [Not Recovered/Not Resolved]
